FAERS Safety Report 9164833 (Version 1)
Quarter: 2013Q1

REPORT INFORMATION
  Report Type: Spontaneous
  Country: PT (occurrence: PT)
  Receive Date: 20130315
  Receipt Date: 20130315
  Transmission Date: 20140127
  Serious: Yes (Other)
  Sender: FDA-Public Use
  Company Number: PT-JNJFOC-20130300526

PATIENT
  Age: 17 Year
  Sex: Female

DRUGS (5)
  1. RISPERDAL [Suspect]
     Indication: SUICIDAL IDEATION
     Dosage: 2MG IN THE MORNING AND 1 MG AT NIGHT.
     Route: 048
     Dates: start: 20130228
  2. RISPERDAL [Suspect]
     Indication: SUICIDAL IDEATION
     Route: 048
  3. RISPERDAL [Suspect]
     Indication: SUICIDAL IDEATION
     Dosage: 0.5MG IN THE MORNING AND 0.5MG AT NIGHT
     Route: 048
     Dates: start: 20130128
  4. RISPERDAL [Suspect]
     Indication: SUICIDAL IDEATION
     Route: 048
     Dates: start: 20130227, end: 20130228
  5. FLUOXETINE [Concomitant]
     Route: 065

REACTIONS (3)
  - Myopia [Recovering/Resolving]
  - Somnolence [Unknown]
  - Feeling abnormal [Unknown]
